FAERS Safety Report 7077691-2 (Version None)
Quarter: 2010Q4

REPORT INFORMATION
  Report Type: 
  Country: None (occurrence: None)
  Receive Date: 20101101
  Receipt Date: 20101027
  Transmission Date: 20110411
  Serious: Yes (Death)
  Sender: FDA-Public Use
  Company Number: US-US-EMD SERONO, INC.-232433J09USA

PATIENT
  Sex: Female

DRUGS (4)
  1. REBIF [Suspect]
     Indication: MULTIPLE SCLEROSIS
     Route: 058
     Dates: start: 20070802, end: 20090609
  2. ATIVAN [Concomitant]
     Dates: end: 20090609
  3. LUNESTA [Concomitant]
     Dates: end: 20090609
  4. HYDROCODONE [Concomitant]
     Dates: end: 20090609

REACTIONS (1)
  - DEATH [None]
